FAERS Safety Report 10509627 (Version 1)
Quarter: 2014Q4

REPORT INFORMATION
  Report Type: Report from Study
  Country: US (occurrence: US)
  Receive Date: 20141010
  Receipt Date: 20141010
  Transmission Date: 20150528
  Serious: Yes (Other)
  Sender: FDA-Public Use
  Company Number: US-ROCHE-1471700

PATIENT
  Age: 85 Year
  Sex: Female
  Weight: 59.02 kg

DRUGS (2)
  1. LUCENTIS [Suspect]
     Active Substance: RANIBIZUMAB
     Indication: AGE-RELATED MACULAR DEGENERATION
     Route: 050
     Dates: start: 201311
  2. DUREZOL [Concomitant]
     Active Substance: DIFLUPREDNATE
     Route: 047
     Dates: start: 20140703

REACTIONS (5)
  - Eye haemorrhage [Unknown]
  - Ocular hyperaemia [Unknown]
  - Blindness transient [Unknown]
  - Eye contusion [Unknown]
  - Eye infection [Unknown]

NARRATIVE: CASE EVENT DATE: 20140703
